FAERS Safety Report 11284943 (Version 5)
Quarter: 2016Q2

REPORT INFORMATION
  Report Type: Report from Study
  Country: US (occurrence: US)
  Receive Date: 20150720
  Receipt Date: 20160428
  Transmission Date: 20160815
  Serious: Yes (Other)
  Sender: FDA-Public Use
  Company Number: US-AEGERION PHARMACEUTICAL INC.-AEGR001320

PATIENT
  Age: 66 Year
  Sex: Female
  Weight: 72.56 kg

DRUGS (4)
  1. FISH OIL [Concomitant]
     Active Substance: FISH OIL
     Indication: BLOOD CHOLESTEROL INCREASED
     Dosage: UNK
  2. JUXTAPID [Suspect]
     Active Substance: LOMITAPIDE MESYLATE
     Indication: TYPE IIA HYPERLIPIDAEMIA
     Dosage: 5 MG, QD
     Route: 048
     Dates: start: 20150411, end: 201601
  3. LOVAZA [Concomitant]
     Active Substance: OMEGA-3-ACID ETHYL ESTERS
     Indication: BLOOD CHOLESTEROL INCREASED
     Dosage: 1 G, UNK
  4. JUXTAPID [Suspect]
     Active Substance: LOMITAPIDE MESYLATE
     Dosage: 5 MG, QD
     Route: 048
     Dates: start: 201601

REACTIONS (18)
  - Oropharyngeal pain [Not Recovered/Not Resolved]
  - Meniscus injury [Unknown]
  - Post procedural oedema [Not Recovered/Not Resolved]
  - Diarrhoea [Unknown]
  - Myalgia [Not Recovered/Not Resolved]
  - Arthralgia [Not Recovered/Not Resolved]
  - Headache [Not Recovered/Not Resolved]
  - Fatigue [Not Recovered/Not Resolved]
  - Pain [Not Recovered/Not Resolved]
  - Weight increased [Unknown]
  - Knee operation [Unknown]
  - Weight decreased [Unknown]
  - Drug dose omission [Recovered/Resolved]
  - Steatorrhoea [Unknown]
  - Swelling [Unknown]
  - Pyrexia [Unknown]
  - Therapy cessation [Recovered/Resolved]
  - Influenza [Unknown]

NARRATIVE: CASE EVENT DATE: 2015
